FAERS Safety Report 24915102 (Version 1)
Quarter: 2025Q1

REPORT INFORMATION
  Report Type: Other
  Country: US (occurrence: US)
  Receive Date: 20250203
  Receipt Date: 20250203
  Transmission Date: 20250409
  Serious: Yes (Death, Hospitalization, Other)
  Sender: ANI
  Company Number: US-ANIPHARMA-015530

PATIENT
  Sex: Male

DRUGS (5)
  1. SULFAMETHOXAZOLE\TRIMETHOPRIM [Suspect]
     Active Substance: SULFAMETHOXAZOLE\TRIMETHOPRIM
     Indication: Nocardiosis
  2. IMIPENEM [Concomitant]
     Active Substance: IMIPENEM
     Indication: Nocardiosis
  3. PREDNISONE [Concomitant]
     Active Substance: PREDNISONE
     Indication: Pulmonary sarcoidosis
  4. LINEZOLID [Concomitant]
     Active Substance: LINEZOLID
     Indication: Nocardiosis
  5. PREDNISONE [Concomitant]
     Active Substance: PREDNISONE
     Indication: Pulmonary sarcoidosis

REACTIONS (2)
  - Drug ineffective [Fatal]
  - Acute kidney injury [Unknown]
